FAERS Safety Report 5320100-1 (Version None)
Quarter: 2007Q2

REPORT INFORMATION
  Report Type: 
  Country: None (occurrence: None)
  Receive Date: 20070509
  Receipt Date: 20070419
  Transmission Date: 20071010
  Serious: Yes (Hospitalization)
  Sender: FDA-Public Use
  Company Number: JP-ASTRAZENECA-2007AP01376

PATIENT
  Age: 30142 Day
  Sex: Female
  Weight: 45 kg

DRUGS (10)
  1. CRESTOR [Suspect]
     Indication: HYPERCHOLESTEROLAEMIA
     Route: 048
     Dates: start: 20051212, end: 20051231
  2. CRESTOR [Suspect]
     Route: 048
     Dates: start: 20060104, end: 20060105
  3. FRANDOL [Concomitant]
     Indication: MYOCARDIAL INFARCTION
     Dates: start: 20051201, end: 20060106
  4. HEPARIN [Concomitant]
     Indication: REFLUX OESOPHAGITIS
     Route: 042
     Dates: start: 20051202, end: 20060104
  5. HERBESSER [Concomitant]
     Indication: MYOCARDIAL INFARCTION
     Route: 048
     Dates: start: 20051205, end: 20061201
  6. UNKNOWN DRUG [Concomitant]
     Indication: CONSTIPATION
     Route: 048
     Dates: start: 20051206, end: 20060106
  7. BLOPRESS [Concomitant]
     Indication: HYPERTENSION
     Route: 048
     Dates: start: 20051208, end: 20060106
  8. SOLDACTONE [Concomitant]
     Indication: CARDIAC FAILURE
     Route: 042
     Dates: start: 20051205, end: 20060104
  9. LANIRAPID [Concomitant]
     Indication: CARDIAC FAILURE
     Route: 048
     Dates: start: 20051206, end: 20060106
  10. STRONGER NEO MINOPHAGEN C [Concomitant]
     Indication: HEPATIC FAILURE
     Route: 042
     Dates: start: 20060101, end: 20060103

REACTIONS (1)
  - CARDIAC FAILURE [None]
